FAERS Safety Report 10421776 (Version 1)
Quarter: 2014Q3

REPORT INFORMATION
  Report Type: Spontaneous
  Country: GB (occurrence: GB)
  Receive Date: 20140901
  Receipt Date: 20140901
  Transmission Date: 20150326
  Serious: Yes (Other)
  Sender: FDA-Public Use
  Company Number: GB-ACCORD-025535

PATIENT
  Age: 84 Year
  Sex: Male

DRUGS (13)
  1. BENDROFLUMETHIAZIDE [Concomitant]
     Active Substance: BENDROFLUMETHIAZIDE
  2. LOPERAMIDE [Concomitant]
     Active Substance: LOPERAMIDE
  3. CREON [Concomitant]
     Active Substance: PANCRELIPASE AMYLASE\PANCRELIPASE LIPASE\PANCRELIPASE PROTEASE
     Dosage: 10000 CAPSULES
  4. PREDNISONE. [Concomitant]
     Active Substance: PREDNISONE
  5. OMEPRAZOLE. [Concomitant]
     Active Substance: OMEPRAZOLE
     Route: 048
  6. AMLODIPINE [Concomitant]
     Active Substance: AMLODIPINE BESYLATE
     Route: 048
  7. ZOPICLONE [Concomitant]
     Active Substance: ZOPICLONE
  8. ADCAL [Concomitant]
     Route: 048
  9. FINASTERIDE. [Suspect]
     Active Substance: FINASTERIDE
     Indication: PRODUCT USED FOR UNKNOWN INDICATION
  10. COLESTYRAMINE [Concomitant]
     Active Substance: CHOLESTYRAMINE
  11. AMOXICILLIN. [Concomitant]
     Active Substance: AMOXICILLIN
     Dosage: TAKEN AT NIGHT
     Route: 048
  12. TAMSULOSIN/TAMSULOSIN HYDROCHLORIDE [Concomitant]
  13. BETAHISTINE [Concomitant]
     Active Substance: BETAHISTINE

REACTIONS (2)
  - Obstructive airways disorder [Recovered/Resolved]
  - Swollen tongue [Recovered/Resolved]

NARRATIVE: CASE EVENT DATE: 20140710
